FAERS Safety Report 9701740 (Version 1)
Quarter: 2013Q4

REPORT INFORMATION
  Report Type: Spontaneous
  Country: US (occurrence: None)
  Receive Date: 20131120
  Receipt Date: 20131120
  Transmission Date: 20140711
  Serious: No
  Sender: FDA-Public Use
  Company Number: None

PATIENT
  Age: 78 Year
  Sex: Male
  Weight: 80.74 kg

DRUGS (2)
  1. XARELTO 20 MG JANSSEN [Suspect]
     Indication: ATRIAL FIBRILLATION
     Dosage: 1 AT EVENING MEAL  ONCE DAILY  TAKEN BY MOUTH?DATES OF USE:  11/08/2013 - 11/26/2013
     Route: 048
     Dates: start: 20131108
  2. XARELTO 20 MG JANSSEN [Suspect]
     Indication: CARDIAC AMYLOIDOSIS
     Dosage: 1 AT EVENING MEAL  ONCE DAILY  TAKEN BY MOUTH?DATES OF USE:  11/08/2013 - 11/26/2013
     Route: 048
     Dates: start: 20131108

REACTIONS (1)
  - Blood urine [None]
